FAERS Safety Report 8005451-4 (Version None)
Quarter: 2011Q4

REPORT INFORMATION
  Report Type: 
  Country: None (occurrence: None)
  Receive Date: 20111223
  Receipt Date: 20111213
  Transmission Date: 20120403
  Serious: Yes (Other)
  Sender: FDA-Public Use
  Company Number: CA-JNJFOC-20111208159

PATIENT
  Sex: Female
  Weight: 61.8 kg

DRUGS (3)
  1. REMICADE [Suspect]
     Dosage: ONCE IN 6 TO 7 WEEKS
     Route: 042
     Dates: start: 20090501
  2. ALESSE [Concomitant]
     Route: 065
  3. REMICADE [Suspect]
     Indication: CROHN'S DISEASE
     Dosage: THIS WAS 19TH INFUSION
     Route: 042
     Dates: start: 20111118

REACTIONS (1)
  - INTESTINAL RESECTION [None]
